FAERS Safety Report 6297746-X (Version None)
Quarter: 2009Q3

REPORT INFORMATION
  Report Type: 
  Country: None (occurrence: None)
  Receive Date: 20090805
  Receipt Date: 20090727
  Transmission Date: 20100115
  Serious: Yes (Hospitalization)
  Sender: FDA-Public Use
  Company Number: JP-ROCHE-647717

PATIENT
  Age: 58 Year
  Sex: Male
  Weight: 71 kg

DRUGS (2)
  1. PEGASYS [Suspect]
     Route: 058
     Dates: start: 20090321, end: 20090702
  2. ACINON [Concomitant]
     Route: 048

REACTIONS (1)
  - NEPHROTIC SYNDROME [None]
